FAERS Safety Report 25827226 (Version 2)
Quarter: 2025Q4

REPORT INFORMATION
  Report Type: Spontaneous
  Country: RS (occurrence: RS)
  Receive Date: 20250920
  Receipt Date: 20251008
  Transmission Date: 20260117
  Serious: Yes (Other)
  Sender: NOVARTIS
  Company Number: RS-002147023-NVSC2025RS142489

PATIENT
  Age: 73 Year
  Sex: Male

DRUGS (9)
  1. DABRAFENIB [Suspect]
     Active Substance: DABRAFENIB
     Indication: Metastatic malignant melanoma
     Dosage: 150 MG (2X1)
     Route: 048
     Dates: start: 20240708
  2. TRAMETINIB [Suspect]
     Active Substance: TRAMETINIB
     Indication: Metastatic malignant melanoma
     Dosage: 2 MG (1X1)
     Route: 048
     Dates: start: 20240708
  3. ASPIRIN [Concomitant]
     Active Substance: ASPIRIN
     Indication: Product used for unknown indication
     Dosage: 75 MG (1X1)
     Route: 065
     Dates: start: 2021
  4. NEBIVOLOL [Concomitant]
     Active Substance: NEBIVOLOL
     Indication: Product used for unknown indication
     Dosage: 5 MG (1X1)
     Route: 065
     Dates: start: 2021
  5. Paravano [Concomitant]
     Indication: Product used for unknown indication
     Dosage: 20 MG (1X1)
     Route: 065
     Dates: start: 2021
  6. Trimetacor [Concomitant]
     Indication: Product used for unknown indication
     Dosage: 35 MG (2X1)
     Route: 065
     Dates: start: 2021
  7. AMIODARONE [Concomitant]
     Active Substance: AMIODARONE
     Indication: Product used for unknown indication
     Dosage: 200 MG (1X1)
     Route: 065
     Dates: start: 2021
  8. Aminofilin [Concomitant]
     Indication: Product used for unknown indication
     Dosage: 350 MG (2X1)
     Route: 065
     Dates: start: 2021
  9. BISOPROLOL FUMARATE [Concomitant]
     Active Substance: BISOPROLOL FUMARATE
     Indication: Product used for unknown indication
     Dosage: 1.25 MG (1+0+1)
     Route: 065
     Dates: start: 2021

REACTIONS (3)
  - Loss of consciousness [Recovered/Resolved]
  - Pyrexia [Recovered/Resolved]
  - Hypotension [Recovered/Resolved]

NARRATIVE: CASE EVENT DATE: 20240719
